FAERS Safety Report 23576709 (Version 1)
Quarter: 2024Q1

REPORT INFORMATION
  Report Type: Spontaneous
  Country: US (occurrence: None)
  Receive Date: 20240228
  Receipt Date: 20240228
  Transmission Date: 20240410
  Serious: Yes (Other)
  Sender: FDA-Public Use
  Company Number: None

PATIENT
  Age: 74 Year
  Sex: Female

DRUGS (1)
  1. VERZENIO [Suspect]
     Active Substance: ABEMACICLIB

REACTIONS (4)
  - Diarrhoea [None]
  - Headache [None]
  - Abdominal pain upper [None]
  - Somnolence [None]

NARRATIVE: CASE EVENT DATE: 20240228
